FAERS Safety Report 5224285-7 (Version None)
Quarter: 2007Q1

REPORT INFORMATION
  Report Type: 
  Country: None (occurrence: None)
  Receive Date: 20070130
  Receipt Date: 20070123
  Transmission Date: 20070707
  Serious: Yes (Other)
  Sender: FDA-Public Use
  Company Number: US-ELI_LILLY_AND_COMPANY-US200701005102

PATIENT
  Sex: Female

DRUGS (2)
  1. HUMALOG [Suspect]
     Indication: DIABETES MELLITUS
     Dates: start: 19990101
  2. LANTUS [Concomitant]
     Indication: DIABETES MELLITUS

REACTIONS (4)
  - BLINDNESS TRANSIENT [None]
  - MULTIPLE SCLEROSIS [None]
  - RETINOPATHY [None]
  - VERTIGO [None]
